FAERS Safety Report 24645434 (Version 1)
Quarter: 2024Q4

REPORT INFORMATION
  Report Type: Spontaneous
  Country: US (occurrence: US)
  Receive Date: 20241121
  Receipt Date: 20241121
  Transmission Date: 20250114
  Serious: No
  Sender: ALVOGEN
  Company Number: US-ALVOGEN-2024095016

PATIENT
  Sex: Female

DRUGS (3)
  1. TERIPARATIDE [Suspect]
     Active Substance: TERIPARATIDE
     Indication: Osteoporosis
     Dosage: DAILY; ONGOING?STRENGTH: 250MCG/ML
     Route: 058
     Dates: start: 202305
  2. ENTYVIO [Concomitant]
     Active Substance: VEDOLIZUMAB
     Indication: Colitis ulcerative
     Dosage: UNKNOWN LAST DOSE
  3. ENTYVIO [Concomitant]
     Active Substance: VEDOLIZUMAB
     Indication: Colitis ulcerative
     Dosage: LAST DISPENSED IN JAN-2024?UNKNOWN WHERE THE PATIENT WAS RECEIVING THE MEDICATION SINCE JAN-2024

REACTIONS (2)
  - Abdominal discomfort [Unknown]
  - Pain [Unknown]
